FAERS Safety Report 6212133-8 (Version None)
Quarter: 2009Q2

REPORT INFORMATION
  Report Type: 
  Country: None (occurrence: None)
  Receive Date: 20090602
  Receipt Date: 20090527
  Transmission Date: 20091009
  Serious: Yes (Other)
  Sender: FDA-Public Use
  Company Number: PHEH2008US11032

PATIENT
  Sex: Male

DRUGS (1)
  1. TRILEPTAL [Suspect]
     Dosage: 600 MG, UNK

REACTIONS (4)
  - LENTIGO MALIGNA STAGE UNSPECIFIED [None]
  - RASH [None]
  - STOMATITIS [None]
  - SURGERY [None]
